FAERS Safety Report 4444811-5 (Version None)
Quarter: 2004Q3

REPORT INFORMATION
  Report Type: 
  Country: None (occurrence: None)
  Receive Date: 20040903
  Receipt Date: 20040827
  Transmission Date: 20050211
  Serious: Yes (Life-Threatening, Hospitalization)
  Sender: FDA-Public Use
  Company Number: 2004SE04876

PATIENT
  Age: 53 Year
  Sex: Male

DRUGS (4)
  1. PLENDIL [Suspect]
     Dosage: 5 MG DAILY PO
     Route: 048
  2. LESCOL XL [Suspect]
     Indication: HYPERLIPIDAEMIA
     Dosage: 80 MG DAILY PO
     Route: 048
     Dates: start: 20040601, end: 20040803
  3. MONOPRIL [Concomitant]
  4. GODASAL [Concomitant]

REACTIONS (2)
  - DRUG INTERACTION [None]
  - RHABDOMYOLYSIS [None]
